FAERS Safety Report 9749892 (Version 4)
Quarter: 2014Q2

REPORT INFORMATION
  Report Type: Spontaneous
  Country: US (occurrence: US)
  Receive Date: 20131212
  Receipt Date: 20140516
  Transmission Date: 20141212
  Serious: Yes (Other)
  Sender: FDA-Public Use
  Company Number: US-PFIZER INC-2013355097

PATIENT
  Age: 62 Year
  Sex: Female
  Weight: 118 kg

DRUGS (8)
  1. ARTHROTEC [Suspect]
     Indication: INFLAMMATION
     Dosage: 1 DF, 3X/DAY
     Dates: start: 2000, end: 201308
  2. ARTHROTEC [Suspect]
     Dosage: 1 DF, 3X/DAY
     Dates: start: 201311
  3. DICLOFENAC SODIUM/MISOPROSTOL [Suspect]
     Indication: DISCOMFORT
     Dosage: 1 DF, 3X/DAY (MISOPROSTOL 0.2MG /DICLOFENAC SODIUM 75MG, 3X/DAY)
     Route: 048
     Dates: start: 2013, end: 201311
  4. DICLOFENAC SODIUM/MISOPROSTOL [Suspect]
     Indication: MUSCULOSKELETAL STIFFNESS
  5. DICLOFENAC SODIUM/MISOPROSTOL [Suspect]
     Indication: INFLAMMATION
  6. DICLOFENAC SODIUM/MISOPROSTOL [Suspect]
     Indication: BACK PAIN
  7. HYDROCODONE W/ACETAMINOPHEN [Concomitant]
     Indication: PAIN IN EXTREMITY
     Dosage: UNK (^7.5MG^), EVERY 4 TO 6 HRS
  8. HYDROCODONE W/ACETAMINOPHEN [Concomitant]
     Dosage: HYDROCODONE 10MG/ACETAMINOPHEN 325 MG EVERY 4 TO 6 HOURS

REACTIONS (8)
  - Lower limb fracture [Unknown]
  - Arthropathy [Unknown]
  - Pneumonia [Unknown]
  - Abasia [Recovering/Resolving]
  - Weight increased [Unknown]
  - Limb discomfort [Recovering/Resolving]
  - Back pain [Recovering/Resolving]
  - Back disorder [Recovering/Resolving]
